FAERS Safety Report 18751933 (Version 1)
Quarter: 2021Q1

REPORT INFORMATION
  Report Type: Spontaneous
  Country: US (occurrence: US)
  Receive Date: 20210118
  Receipt Date: 20210118
  Transmission Date: 20210419
  Serious: Yes (Other)
  Sender: FDA-Public Use
  Company Number: US-OREXO US, INC.-ORE202101-000002

PATIENT
  Sex: Male
  Weight: 86.64 kg

DRUGS (6)
  1. ZUBSOLV [Suspect]
     Active Substance: BUPRENORPHINE HYDROCHLORIDE\NALOXONE HYDROCHLORIDE
     Indication: PAIN
     Dosage: ONCE A DAY
  2. FLOMAX [Concomitant]
     Active Substance: TAMSULOSIN HYDROCHLORIDE
  3. PRILOSEC [Concomitant]
     Active Substance: OMEPRAZOLE MAGNESIUM
  4. CIALIS [Concomitant]
     Active Substance: TADALAFIL
     Dosage: 5 MG, ONCE A DAY
     Route: 048
  5. ASPIRIN. [Concomitant]
     Active Substance: ASPIRIN
     Dosage: 80 MG
     Route: 048
  6. ZUBSOLV [Suspect]
     Active Substance: BUPRENORPHINE HYDROCHLORIDE\NALOXONE HYDROCHLORIDE
     Dosage: CUT THE TABLET IN HALF AND TOOK HALF TWICE A DAY

REACTIONS (9)
  - Nephrolithiasis [Unknown]
  - Tongue ulceration [Recovered/Resolved]
  - Wrong technique in product usage process [Unknown]
  - Abnormal loss of weight [Unknown]
  - Swollen tongue [Recovered/Resolved]
  - Tongue discomfort [Not Recovered/Not Resolved]
  - Gingivitis [Unknown]
  - Dental caries [Unknown]
  - Product use in unapproved indication [Unknown]
